FAERS Safety Report 6955091-0 (Version None)
Quarter: 2010Q3

REPORT INFORMATION
  Report Type: 
  Country: None (occurrence: None)
  Receive Date: 20100830
  Receipt Date: 20100825
  Transmission Date: 20110219
  Serious: Yes (Death, Life-Threatening, Hospitalization)
  Sender: FDA-Public Use
  Company Number: IN-SANOFI-AVENTIS-200910839GDDC

PATIENT
  Age: 49 Year
  Sex: Male
  Weight: 55 kg

DRUGS (38)
  1. PLACEBO [Suspect]
     Dosage: DOSE UNIT: 6 MG/KG
     Route: 042
     Dates: start: 20090114, end: 20090114
  2. DOCETAXEL [Suspect]
     Dosage: DOSE UNIT: 75 MG/M**2
     Route: 042
     Dates: start: 20090114, end: 20090114
  3. COLGEN [Concomitant]
     Dates: start: 20080718
  4. COLGEN [Concomitant]
     Dates: start: 20080701
  5. MULTI-VITAMINS [Concomitant]
     Dates: start: 20080718
  6. HISTAC [Concomitant]
     Dates: start: 20081022
  7. MULTI-VITAMINS [Concomitant]
     Dates: start: 20080701
  8. EPTOIN [Concomitant]
     Dates: start: 20081112
  9. AUGMENTIN '125' [Concomitant]
  10. LEVOFLOXACIN [Concomitant]
  11. IPRATROPIUM BROMIDE/SALBUTAMOL SULFATE [Concomitant]
     Route: 055
     Dates: start: 20090127, end: 20090220
  12. BECLOMETHASONE DIPROPIONATE [Concomitant]
     Route: 055
     Dates: start: 20081022
  13. CORTICOSTEROIDS [Concomitant]
  14. ONDANSETRON [Concomitant]
     Dates: start: 20081023, end: 20081025
  15. ONDANSETRON [Concomitant]
     Route: 051
     Dates: start: 20081022, end: 20081022
  16. DECADRON [Concomitant]
     Dates: start: 20081023, end: 20081023
  17. DECADRON [Concomitant]
     Route: 051
     Dates: start: 20081022, end: 20081022
  18. DECADRON [Concomitant]
     Dates: start: 20090121, end: 20090127
  19. RANTAC [Concomitant]
     Dates: start: 20081022, end: 20081022
  20. RANTAC [Concomitant]
     Dates: start: 20090122
  21. BUDECORT ^ASTRA^ [Concomitant]
     Dates: start: 20090121, end: 20090122
  22. MANNITOL [Concomitant]
     Dates: start: 20090121, end: 20090127
  23. TAXIM [Concomitant]
     Dates: start: 20090122, end: 20090124
  24. ALL OTHER THERAPEUTIC PRODUCTS [Concomitant]
     Dates: start: 20090122, end: 20090221
  25. AMIKACIN [Concomitant]
     Dates: start: 20090123, end: 20090202
  26. CLAVULANIC ACID/TICARCILLIN DISODIUM [Concomitant]
     Dates: start: 20090124, end: 20090203
  27. CLARITHROMYCIN [Concomitant]
     Dates: start: 20090125, end: 20090203
  28. DUPHALAC /NET/ [Concomitant]
     Dates: start: 20090125, end: 20090220
  29. CLEXANE /NET/ [Concomitant]
     Dates: start: 20090126, end: 20090217
  30. ALPHA D3 [Concomitant]
     Dates: start: 20090126, end: 20090220
  31. LASIX [Concomitant]
     Dates: start: 20090123
  32. HYDROCORTISONE [Concomitant]
     Dates: start: 20090123
  33. DECADRON [Concomitant]
     Dates: start: 20090124
  34. ALL OTHER THERAPEUTIC PRODUCTS [Concomitant]
     Dates: start: 20090206
  35. CIFRAN [Concomitant]
     Dates: start: 20090210, end: 20090216
  36. SERENACE [Concomitant]
     Dates: start: 20090216, end: 20090216
  37. CEFUROXIME [Concomitant]
     Dates: start: 20090216, end: 20090221
  38. PHENIRAMINE [Concomitant]
     Dates: start: 20090211

REACTIONS (6)
  - ANAEMIA [None]
  - DECREASED APPETITE [None]
  - HYPOKALAEMIA [None]
  - NAUSEA [None]
  - RESPIRATORY TRACT INFECTION [None]
  - SEPSIS [None]
